FAERS Safety Report 24676888 (Version 1)
Quarter: 2024Q4

REPORT INFORMATION
  Report Type: Report from Study
  Country: TN (occurrence: TN)
  Receive Date: 20241128
  Receipt Date: 20241128
  Transmission Date: 20250114
  Serious: Yes (Hospitalization)
  Sender: ABBVIE
  Company Number: TN-ABBVIE-6021586

PATIENT
  Age: 15 Year
  Sex: Male

DRUGS (3)
  1. HUMIRA [Suspect]
     Active Substance: ADALIMUMAB
     Indication: Crohn^s disease
     Dosage: 2 X 40 MG (LOADING DOSE)?FORM STRENGTH: 40 MILLIGRAM
     Route: 058
     Dates: start: 20241009, end: 20241009
  2. HUMIRA [Suspect]
     Active Substance: ADALIMUMAB
     Dosage: FORM STRENGTH: 40 MILLIGRAM
     Route: 058
     Dates: start: 20241023, end: 20241023
  3. AZATHIOPRINE SODIUM [Concomitant]
     Active Substance: AZATHIOPRINE SODIUM
     Indication: Crohn^s disease
     Dosage: 1 TABLET; PARALLEL WITH HUMIRA(OCT-2024)
     Route: 048
     Dates: end: 20241106

REACTIONS (13)
  - Food intolerance [Recovered/Resolved]
  - Gastroenteritis viral [Unknown]
  - Crohn^s disease [Recovered/Resolved]
  - Gastrointestinal sounds abnormal [Unknown]
  - Crohn^s disease [Recovered/Resolved]
  - Drug ineffective [Not Recovered/Not Resolved]
  - Vomiting [Not Recovered/Not Resolved]
  - Pyrexia [Recovered/Resolved]
  - Pain [Not Recovered/Not Resolved]
  - Vomiting [Recovered/Resolved]
  - Crohn^s disease [Recovered/Resolved]
  - Surgery [Unknown]
  - Incision site pain [Not Recovered/Not Resolved]

NARRATIVE: CASE EVENT DATE: 20240101
